FAERS Safety Report 8079771-1 (Version None)
Quarter: 2012Q1

REPORT INFORMATION
  Report Type: 
  Country: None (occurrence: None)
  Receive Date: 20120128
  Receipt Date: 20110729
  Transmission Date: 20120608
  Serious: No
  Sender: FDA-Public Use
  Company Number: US-ABBOTT-11P-163-0843006-00

PATIENT
  Age: 21 Year
  Sex: Female

DRUGS (2)
  1. HUMIRA [Suspect]
     Indication: PSORIASIS
     Dates: start: 20110601
  2. BUSPIRONE HCL [Concomitant]
     Indication: ANXIETY

REACTIONS (3)
  - ANXIETY [None]
  - VOMITING [None]
  - INSOMNIA [None]
